FAERS Safety Report 5933603-3 (Version None)
Quarter: 2008Q4

REPORT INFORMATION
  Report Type: 
  Country: None (occurrence: None)
  Receive Date: 20081024
  Receipt Date: 20081021
  Transmission Date: 20090506
  Serious: Yes (Death)
  Sender: FDA-Public Use
  Company Number: 2008-185579-NL

PATIENT
  Age: 17 Year
  Sex: Female

DRUGS (1)
  1. ETONOGESTREL [Suspect]
     Dosage: DF;
     Dates: start: 20060701

REACTIONS (5)
  - ANXIETY [None]
  - COMPLETED SUICIDE [None]
  - INTENTIONAL SELF-INJURY [None]
  - LACERATION [None]
  - PARTNER STRESS [None]
